FAERS Safety Report 17450714 (Version 1)
Quarter: 2020Q1

REPORT INFORMATION
  Report Type: Spontaneous
  Country: US (occurrence: US)
  Receive Date: 20200224
  Receipt Date: 20200224
  Transmission Date: 20200409
  Serious: Yes (Other)
  Sender: FDA-Public Use
  Company Number: NVSC2020US047818

PATIENT
  Age: 13 Month
  Sex: Male
  Weight: 7.7 kg

DRUGS (1)
  1. LORAZEPAM. [Suspect]
     Active Substance: LORAZEPAM
     Indication: SEIZURE
     Dosage: UNK
     Route: 065

REACTIONS (2)
  - Seizure [Unknown]
  - Product use in unapproved indication [Unknown]
